FAERS Safety Report 4707325-0 (Version None)
Quarter: 2005Q3

REPORT INFORMATION
  Report Type: 
  Country: None (occurrence: None)
  Receive Date: 20050706
  Receipt Date: 20050625
  Transmission Date: 20060218
  Serious: Yes (Other)
  Sender: FDA-Public Use
  Company Number: BR-BRISTOL-MYERS SQUIBB COMPANY-13019005

PATIENT
  Age: 18 Year
  Sex: Female

DRUGS (4)
  1. BUSPAR [Suspect]
     Route: 048
  2. CLOXAZOLAM [Suspect]
  3. CLONAZEPAM [Suspect]
  4. SERTRALINE HCL [Suspect]

REACTIONS (5)
  - DIZZINESS [None]
  - HEADACHE [None]
  - NAUSEA [None]
  - OVERDOSE [None]
  - SUICIDE ATTEMPT [None]
